FAERS Safety Report 5700821-9 (Version None)
Quarter: 2008Q2

REPORT INFORMATION
  Report Type: 
  Country: None (occurrence: None)
  Receive Date: 20080410
  Receipt Date: 20080404
  Transmission Date: 20081010
  Serious: Yes (Hospitalization)
  Sender: FDA-Public Use
  Company Number: JP-GILEAD-E2B_00000118

PATIENT
  Sex: Male

DRUGS (3)
  1. HEPSERA [Suspect]
     Indication: HEPATITIS B
     Dosage: 10MG PER DAY
     Route: 048
     Dates: start: 20080106
  2. ZEFIX [Concomitant]
     Indication: HEPATITIS B
     Route: 048
  3. FAMOTIDINE [Concomitant]
     Route: 065

REACTIONS (1)
  - DIZZINESS [None]
